FAERS Safety Report 7900524-6 (Version None)
Quarter: 2011Q4

REPORT INFORMATION
  Report Type: 
  Country: None (occurrence: None)
  Receive Date: 20111108
  Receipt Date: 20111028
  Transmission Date: 20120403
  Serious: Yes (Hospitalization)
  Sender: FDA-Public Use
  Company Number: FR-TEVA-307929USA

PATIENT
  Age: 13 Day
  Sex: Male
  Weight: 2.02 kg

DRUGS (6)
  1. PROGLYCEM [Suspect]
     Dosage: 4MG/KG/DAY
     Route: 048
     Dates: start: 20110101, end: 20110101
  2. PROGLYCEM [Suspect]
  3. PROGLYCEM [Suspect]
     Dosage: 5MG/KG/DAY
     Route: 048
     Dates: start: 20110913, end: 20110101
  4. PROGLYCEM [Suspect]
     Indication: HYPOGLYCAEMIA NEONATAL
     Dosage: 15MG/KG/DAY
     Route: 048
     Dates: start: 20110826, end: 20110826
  5. PROGLYCEM [Suspect]
     Dosage: 15MG/KG/DAY
     Route: 048
     Dates: start: 20110830, end: 20110906
  6. PROGLYCEM [Suspect]
     Dosage: 3.5MG/KG/DAY
     Route: 048
     Dates: start: 20110101

REACTIONS (1)
  - OEDEMA PERIPHERAL [None]
